FAERS Safety Report 23936856 (Version 1)
Quarter: 2024Q2

REPORT INFORMATION
  Report Type: Spontaneous
  Country: US (occurrence: US)
  Receive Date: 20240604
  Receipt Date: 20240604
  Transmission Date: 20240716
  Serious: Yes (Other)
  Sender: FDA-Public Use
  Company Number: US-SEPTODONT-2024018500

PATIENT

DRUGS (2)
  1. CARBOCAINE [Suspect]
     Active Substance: MEPIVACAINE HYDROCHLORIDE
     Indication: Dental local anaesthesia
     Route: 004
  2. EPINEPHRINE [Suspect]
     Active Substance: EPINEPHRINE
     Indication: Dental operation

REACTIONS (3)
  - Facial paralysis [Unknown]
  - Drug ineffective [Unknown]
  - Feeling abnormal [Unknown]
